FAERS Safety Report 9117676 (Version 1)
Quarter: 2013Q1

REPORT INFORMATION
  Report Type: Report from Study
  Country: US (occurrence: US)
  Receive Date: 20130129
  Receipt Date: 20130129
  Transmission Date: 20140127
  Serious: No
  Sender: FDA-Public Use
  Company Number: US-ABBOTT-12P-163-0939179-00

PATIENT
  Sex: Female

DRUGS (1)
  1. HUMIRA 40 MG/0.8 ML PEN [Suspect]
     Indication: RHEUMATOID ARTHRITIS
     Route: 058
     Dates: start: 201111

REACTIONS (6)
  - Chromaturia [Unknown]
  - Urine odour abnormal [Unknown]
  - Muscle spasms [Unknown]
  - Pain in extremity [Unknown]
  - Dysstasia [Unknown]
  - Gait disturbance [Unknown]
